FAERS Safety Report 11793702 (Version 1)
Quarter: 2015Q4

REPORT INFORMATION
  Report Type: Spontaneous
  Country: FR (occurrence: FR)
  Receive Date: 20151202
  Receipt Date: 20151202
  Transmission Date: 20160305
  Serious: Yes (Hospitalization, Other)
  Sender: FDA-Public Use
  Company Number: FR-009507513-1511FRA015475

PATIENT
  Age: 62 Year
  Sex: Female

DRUGS (2)
  1. NORSET [Suspect]
     Active Substance: MIRTAZAPINE
     Dosage: UNK
     Route: 048
  2. EBIXA [Interacting]
     Active Substance: MEMANTINE HYDROCHLORIDE
     Dosage: UNK

REACTIONS (2)
  - Cancer surgery [Unknown]
  - Drug interaction [Unknown]

NARRATIVE: CASE EVENT DATE: 20151029
